FAERS Safety Report 14702002 (Version 4)
Quarter: 2018Q2

REPORT INFORMATION
  Report Type: Report from Study
  Country: CN (occurrence: CN)
  Receive Date: 20180331
  Receipt Date: 20180606
  Transmission Date: 20180711
  Serious: Yes (Other)
  Sender: FDA-Public Use
  Company Number: CN-ROCHE-1657279

PATIENT
  Age: 71 Year
  Sex: Male
  Weight: 60 kg

DRUGS (2)
  1. AVASTIN [Suspect]
     Active Substance: BEVACIZUMAB
     Route: 041
  2. AVASTIN [Suspect]
     Active Substance: BEVACIZUMAB
     Indication: COLORECTAL CANCER
     Route: 041
     Dates: start: 20120707, end: 20170124

REACTIONS (9)
  - Renal impairment [Unknown]
  - Dizziness [Unknown]
  - Platelet count decreased [Unknown]
  - Hypertension [Recovering/Resolving]
  - Periodontitis [Unknown]
  - Loose tooth [Unknown]
  - Vocal cord disorder [Unknown]
  - Immunodeficiency [Recovering/Resolving]
  - Hypoacusis [Unknown]

NARRATIVE: CASE EVENT DATE: 201509
